FAERS Safety Report 6071007-6 (Version None)
Quarter: 2009Q1

REPORT INFORMATION
  Report Type: 
  Country: None (occurrence: None)
  Receive Date: 20090209
  Receipt Date: 20090205
  Transmission Date: 20090719
  Serious: Yes (Death, Life-Threatening)
  Sender: FDA-Public Use
  Company Number: B0553855A

PATIENT
  Age: 72 Year
  Sex: Female

DRUGS (5)
  1. ZOVIRAX [Suspect]
     Indication: MENINGITIS
     Dosage: 2250MG PER DAY
     Route: 042
     Dates: start: 20081126, end: 20081129
  2. ROCEPHIN [Suspect]
     Indication: MENINGITIS BACTERIAL
     Dosage: 4G PER DAY
     Route: 042
     Dates: start: 20081126, end: 20081128
  3. BACTRIM [Suspect]
     Indication: MENINGITIS BACTERIAL
     Dosage: 60ML PER DAY
     Route: 042
     Dates: start: 20081128, end: 20081211
  4. AMPLITAL [Concomitant]
     Dosage: 12G PER DAY
     Route: 042
     Dates: start: 20081126, end: 20081216
  5. LEVOXACIN [Concomitant]
     Dosage: 500MG PER DAY
     Route: 042
     Dates: start: 20081129, end: 20081212

REACTIONS (9)
  - ACUTE RESPIRATORY DISTRESS SYNDROME [None]
  - BLOOD CULTURE POSITIVE [None]
  - BONE MARROW FAILURE [None]
  - ENTEROCOCCAL INFECTION [None]
  - MULTI-ORGAN FAILURE [None]
  - PULMONARY EMBOLISM [None]
  - RENAL FAILURE ACUTE [None]
  - SEPSIS [None]
  - SEPTIC SHOCK [None]
